FAERS Safety Report 20355781 (Version 1)
Quarter: 2022Q1

REPORT INFORMATION
  Report Type: Spontaneous
  Country: US (occurrence: None)
  Receive Date: 20220119
  Receipt Date: 20220119
  Transmission Date: 20220423
  Serious: Yes (Hospitalization)
  Sender: FDA-Public Use
  Company Number: None

PATIENT
  Age: 73 Year
  Sex: Female
  Weight: 58.23 kg

DRUGS (17)
  1. CAPECITABINE [Suspect]
     Active Substance: CAPECITABINE
     Indication: Breast cancer
     Dosage: OTHER FREQUENCY : DAILY7 ON 7 OFF;?
     Route: 048
     Dates: start: 20210221
  2. AMLODIPINE [Concomitant]
     Active Substance: AMLODIPINE BESYLATE
  3. COZAAR [Concomitant]
     Active Substance: LOSARTAN POTASSIUM
  4. ELIQUIS [Concomitant]
     Active Substance: APIXABAN
  5. FENTANYL [Concomitant]
     Active Substance: FENTANYL
  6. KLONOPIN [Concomitant]
     Active Substance: CLONAZEPAM
  7. LEXAPRO [Concomitant]
     Active Substance: ESCITALOPRAM OXALATE
  8. METOPROLOL [Concomitant]
     Active Substance: METOPROLOL
  9. MIRTAZAPINE [Concomitant]
     Active Substance: MIRTAZAPINE
  10. VITAMINS [Concomitant]
     Active Substance: VITAMINS
  11. MYCOPHENOLIC ACID [Concomitant]
     Active Substance: MYCOPHENOLIC ACID
  12. NORVASC [Concomitant]
     Active Substance: AMLODIPINE BESYLATE
  13. PRAVASTATIN [Concomitant]
     Active Substance: PRAVASTATIN
  14. PROCHLORPERAZINE [Concomitant]
     Active Substance: PROCHLORPERAZINE
  15. PROGRAF [Concomitant]
     Active Substance: TACROLIMUS
  16. TRAMADOL [Concomitant]
     Active Substance: TRAMADOL
  17. XANAX [Concomitant]
     Active Substance: ALPRAZOLAM

REACTIONS (1)
  - Hospitalisation [None]

NARRATIVE: CASE EVENT DATE: 20220119
